FAERS Safety Report 14582947 (Version 2)
Quarter: 2018Q1

REPORT INFORMATION
  Report Type: Spontaneous
  Country: US (occurrence: US)
  Receive Date: 20180228
  Receipt Date: 20180305
  Transmission Date: 20180509
  Serious: Yes (Death, Hospitalization)
  Sender: FDA-Public Use
  Company Number: US-FRESENIUS MEDICAL CARE RENAL THERAPIES GROUP-FMC-1802-000367

PATIENT
  Age: 64 Year
  Sex: Female

DRUGS (17)
  1. HYDRALAZINE [Concomitant]
     Active Substance: HYDRALAZINE HYDROCHLORIDE
  2. RENVELA [Concomitant]
     Active Substance: SEVELAMER CARBONATE
  3. ATENOLOL. [Concomitant]
     Active Substance: ATENOLOL
  4. FISH OIL [Concomitant]
     Active Substance: FISH OIL
  5. HYDROCODONE [Concomitant]
     Active Substance: HYDROCODONE
  6. VITAMIN D3 [Concomitant]
     Active Substance: CHOLECALCIFEROL
  7. GABAPENTIN. [Concomitant]
     Active Substance: GABAPENTIN
  8. CALCITRIOL. [Concomitant]
     Active Substance: CALCITRIOL
  9. POTASSIUM [Concomitant]
     Active Substance: POTASSIUM
  10. DELFLEX [Suspect]
     Active Substance: CALCIUM CHLORIDE\DEXTROSE\MAGNESIUM CHLORIDE\SODIUM CHLORIDE\SODIUM LACTATE
     Indication: END STAGE RENAL DISEASE
     Route: 033
     Dates: start: 20141028
  11. ASPRIN [Concomitant]
     Active Substance: ASPIRIN
  12. IRON [Concomitant]
     Active Substance: IRON
  13. TRADJENTA [Concomitant]
     Active Substance: LINAGLIPTIN
  14. ATORVASTATIN [Concomitant]
     Active Substance: ATORVASTATIN
  15. COZAAR [Concomitant]
     Active Substance: LOSARTAN POTASSIUM
  16. FLUTICASONE. [Concomitant]
     Active Substance: FLUTICASONE
  17. VALIUM [Concomitant]
     Active Substance: DIAZEPAM

REACTIONS (1)
  - Small intestinal obstruction [Fatal]

NARRATIVE: CASE EVENT DATE: 20180107
